FAERS Safety Report 8366852-8 (Version None)
Quarter: 2012Q2

REPORT INFORMATION
  Report Type: 
  Country: None (occurrence: None)
  Receive Date: 20120517
  Receipt Date: 20120507
  Transmission Date: 20120825
  Serious: Yes (Hospitalization)
  Sender: FDA-Public Use
  Company Number: FR-ROCHE-1058318

PATIENT
  Sex: Male

DRUGS (5)
  1. CELLCEPT [Suspect]
     Indication: TRANSPLANT REJECTION
     Route: 002
     Dates: start: 20120213, end: 20120401
  2. NEORAL [Suspect]
     Indication: TRANSPLANT REJECTION
     Route: 002
     Dates: start: 20120214, end: 20120415
  3. CELLCEPT [Suspect]
     Dosage: DOSE INCREASED
     Dates: start: 20120401, end: 20120415
  4. VALCYTE [Suspect]
     Indication: PRODUCT USED FOR UNKNOWN INDICATION
  5. PREDNISOLONE SODIUM [Suspect]
     Indication: TRANSPLANT REJECTION
     Route: 002
     Dates: start: 20120221, end: 20120415

REACTIONS (2)
  - FEBRILE NEUTROPENIA [None]
  - TOXICITY TO VARIOUS AGENTS [None]
